FAERS Safety Report 8455847-1 (Version None)
Quarter: 2012Q2

REPORT INFORMATION
  Report Type: 
  Country: None (occurrence: None)
  Receive Date: 20120621
  Receipt Date: 20120611
  Transmission Date: 20120825
  Serious: Yes (Hospitalization)
  Sender: FDA-Public Use
  Company Number: US-BAYER-2012-022459

PATIENT
  Age: 51 Year
  Sex: Female
  Weight: 74.376 kg

DRUGS (8)
  1. PRAVASTATIN [Concomitant]
     Dosage: 40 MG, UNK
     Route: 048
     Dates: start: 20061016
  2. SYNTHROID [Concomitant]
     Dosage: 0.05 MG, UNK
     Route: 048
     Dates: start: 20070606
  3. ASPIRIN [Concomitant]
     Dosage: 81 MG, UNK
     Route: 048
     Dates: start: 20061016
  4. METFORMIN HCL [Concomitant]
     Dosage: 500 MG, UNK
     Route: 048
     Dates: start: 20061016
  5. AUGMENTIN '125' [Concomitant]
     Dosage: UNK UNK, BID
     Route: 048
     Dates: start: 20070717
  6. AMOXICILLIN [Concomitant]
     Dosage: 875 MG, BID
     Route: 048
     Dates: start: 20070220
  7. CIPROFLOXACIN HCL [Concomitant]
     Dosage: 500 MG, BID
     Route: 048
     Dates: start: 20070606
  8. YASMIN [Suspect]
     Dosage: UNK

REACTIONS (1)
  - PULMONARY EMBOLISM [None]
